FAERS Safety Report 14671756 (Version 1)
Quarter: 2018Q1

REPORT INFORMATION
  Report Type: Report from Study
  Country: US (occurrence: US)
  Receive Date: 20180323
  Receipt Date: 20180323
  Transmission Date: 20180509
  Serious: Yes (Hospitalization, Other)
  Sender: FDA-Public Use
  Company Number: PHHY2018US048295

PATIENT
  Age: 24 Year
  Sex: Female
  Weight: 62.4 kg

DRUGS (12)
  1. CAYSTON [Suspect]
     Active Substance: AZTREONAM
     Indication: CYSTIC FIBROSIS
     Dosage: 75 MG, TID
     Route: 048
     Dates: start: 20161130
  2. CAYSTON [Suspect]
     Active Substance: AZTREONAM
     Dosage: 75 MG, TID
     Route: 048
     Dates: start: 20170227
  3. PULMOZYME [Concomitant]
     Active Substance: DORNASE ALFA
     Indication: CYSTIC FIBROSIS
     Dosage: 25 MG, QD
     Route: 055
  4. TOBI [Suspect]
     Active Substance: TOBRAMYCIN
     Indication: CYSTIC FIBROSIS
     Dosage: 300 MG, BID
     Route: 065
     Dates: start: 20170101
  5. TOBI [Suspect]
     Active Substance: TOBRAMYCIN
     Indication: PSEUDOMONAS INFECTION
     Dosage: 300 MG, BID
     Route: 065
     Dates: start: 20170321
  6. AZITHROMYCINE [Concomitant]
     Active Substance: AZITHROMYCIN DIHYDRATE
     Indication: PSEUDOMONAS INFECTION
     Dosage: 500 MG, TID
     Route: 048
     Dates: start: 20170321
  7. ORKAMBI [Concomitant]
     Active Substance: IVACAFTOR\LUMACAFTOR
     Indication: CYSTIC FIBROSIS
     Dosage: 2 DF, BID
     Route: 048
     Dates: start: 20170321
  8. CAYSTON [Suspect]
     Active Substance: AZTREONAM
     Dosage: 75 MG, TID
     Route: 048
     Dates: start: 20170328
  9. FLONASE [Concomitant]
     Active Substance: FLUTICASONE PROPIONATE
     Indication: SINUSITIS
     Dosage: 100 MG, QD
     Route: 045
     Dates: start: 20170321
  10. PULMOZYME [Concomitant]
     Active Substance: DORNASE ALFA
     Dosage: 25 MG, QD
     Route: 055
     Dates: start: 20170525, end: 20170528
  11. ALBUTEROL. [Concomitant]
     Active Substance: ALBUTEROL
     Indication: BRONCHIECTASIS
     Dosage: 25 MG, BID
     Route: 055
     Dates: start: 20170321, end: 20170528
  12. LEVAQUIN [Concomitant]
     Active Substance: LEVOFLOXACIN
     Indication: SINUS DISORDER
     Dosage: 750 MG, QD
     Route: 048
     Dates: start: 20170321

REACTIONS (16)
  - Infective pulmonary exacerbation of cystic fibrosis [Recovered/Resolved]
  - Decreased appetite [Unknown]
  - Pyrexia [Unknown]
  - Forced expiratory volume decreased [Unknown]
  - Sputum discoloured [Unknown]
  - Chills [Unknown]
  - Cough [Unknown]
  - Sinus congestion [Unknown]
  - Infective pulmonary exacerbation of cystic fibrosis [Recovered/Resolved]
  - Pulmonary congestion [Unknown]
  - Haemoptysis [Unknown]
  - Pain [Unknown]
  - Sputum increased [Unknown]
  - Myalgia [Unknown]
  - Osteoarthritis [Unknown]
  - C-reactive protein increased [Unknown]

NARRATIVE: CASE EVENT DATE: 20170321
